FAERS Safety Report 25427928 (Version 1)
Quarter: 2025Q2

REPORT INFORMATION
  Report Type: Spontaneous
  Country: FR (occurrence: FR)
  Receive Date: 20250612
  Receipt Date: 20250612
  Transmission Date: 20250717
  Serious: Yes (Other)
  Sender: HIKMA
  Company Number: None

PATIENT
  Age: 35 Year
  Sex: Female

DRUGS (1)
  1. EPIRUBICIN [Suspect]
     Active Substance: EPIRUBICIN
     Indication: Breast cancer
     Route: 042
     Dates: start: 20250131, end: 20250404

REACTIONS (2)
  - Heart failure with midrange ejection fraction [Recovering/Resolving]
  - Troponin increased [Recovering/Resolving]

NARRATIVE: CASE EVENT DATE: 20250514
